FAERS Safety Report 4274828-5 (Version None)
Quarter: 2004Q1

REPORT INFORMATION
  Report Type: 
  Country: None (occurrence: None)
  Receive Date: 20040115
  Receipt Date: 20031230
  Transmission Date: 20041129
  Serious: Yes (Hospitalization)
  Sender: FDA-Public Use
  Company Number: USA030946447

PATIENT
  Age: 45 Year
  Sex: Female
  Weight: 72 kg

DRUGS (12)
  1. PROZAC [Suspect]
     Indication: DEPRESSION
     Dosage: 20 MG/2 DAY
     Dates: start: 19930101
  2. PROZAC [Suspect]
     Indication: OBSESSIVE-COMPULSIVE DISORDER
     Dosage: 20 MG/2 DAY
     Dates: start: 19930101
  3. DALMANE [Concomitant]
  4. DARVOCET-N 100 [Concomitant]
  5. DILANTIN [Concomitant]
  6. PROPRANOLOL [Concomitant]
  7. REMERON [Concomitant]
  8. ROBAXIN [Concomitant]
  9. XANAX [Concomitant]
  10. FLUOXETINE HYDROCHLORIDE [Concomitant]
  11. LEXAPRO [Concomitant]
  12. PEPCID [Concomitant]

REACTIONS (11)
  - ABNORMAL BEHAVIOUR [None]
  - CRYING [None]
  - DEPRESSION [None]
  - DIARRHOEA [None]
  - FAMILY STRESS [None]
  - NASOPHARYNGITIS [None]
  - NERVOUSNESS [None]
  - OBSESSIVE-COMPULSIVE DISORDER [None]
  - PHARMACEUTICAL PRODUCT COMPLAINT [None]
  - TRICHOTILLOMANIA [None]
  - WEIGHT DECREASED [None]
